FAERS Safety Report 9422659 (Version 2)
Quarter: 2013Q3

REPORT INFORMATION
  Report Type: Spontaneous
  Country: JP (occurrence: JP)
  Receive Date: 20130726
  Receipt Date: 20130816
  Transmission Date: 20140515
  Serious: Yes (Other)
  Sender: FDA-Public Use
  Company Number: JP-PFIZER INC-2013214647

PATIENT
  Age: 62 Year
  Sex: Female

DRUGS (2)
  1. DALACIN [Suspect]
     Indication: TONSILLITIS
     Dosage: 600 MG PER DAY
     Dates: start: 20130720
  2. ROCEPHIN [Concomitant]
     Indication: TONSILLITIS
     Dosage: UNK
     Dates: start: 20130720

REACTIONS (1)
  - Pseudomembranous colitis [Recovered/Resolved]
